FAERS Safety Report 9149720 (Version 1)
Quarter: 2013Q1

REPORT INFORMATION
  Report Type: Spontaneous
  Country: US (occurrence: US)
  Receive Date: 20130308
  Receipt Date: 20130308
  Transmission Date: 20140127
  Serious: No
  Sender: FDA-Public Use
  Company Number: US-ENDO PHARMACEUTICALS INC.-OPCR20120409

PATIENT
  Age: 52 None
  Sex: Male

DRUGS (2)
  1. OPANA ER [Suspect]
     Indication: BACK PAIN
     Route: 048
     Dates: start: 20120319, end: 20120501
  2. OXYCODONE HCL 15MG [Concomitant]
     Indication: BREAKTHROUGH PAIN
     Dosage: 15 MG
     Route: 048

REACTIONS (3)
  - Dysarthria [Unknown]
  - Mental status changes [Unknown]
  - Drug ineffective [Recovered/Resolved]
